FAERS Safety Report 13975458 (Version 1)
Quarter: 2017Q3

REPORT INFORMATION
  Report Type: Spontaneous
  Country: US (occurrence: US)
  Receive Date: 20170915
  Receipt Date: 20170915
  Transmission Date: 20171128
  Serious: No
  Sender: FDA-Public Use
  Company Number: US-ASTRAZENECA-2014SE86581

PATIENT

DRUGS (1)
  1. ZOMIG [Suspect]
     Active Substance: ZOLMITRIPTAN
     Dosage: 5.0MG UNKNOWN
     Route: 045

REACTIONS (4)
  - Vomiting [Unknown]
  - Migraine [Unknown]
  - Intentional product misuse [Unknown]
  - Balance disorder [Unknown]

NARRATIVE: CASE EVENT DATE: 20141108
